FAERS Safety Report 13188785 (Version 1)
Quarter: 2017Q1

REPORT INFORMATION
  Report Type: Spontaneous
  Country: US (occurrence: US)
  Receive Date: 20170205
  Receipt Date: 20170205
  Transmission Date: 20170428
  Serious: Yes (Other)
  Sender: FDA-Public Use
  Company Number: None

PATIENT
  Age: 42 Year
  Sex: Female
  Weight: 104.8 kg

DRUGS (14)
  1. AMITRIPTYLINE [Suspect]
     Active Substance: AMITRIPTYLINE
     Indication: PROPHYLAXIS
     Dosage: ?          QUANTITY:1 TABLET(S);?
     Route: 048
     Dates: start: 20170117, end: 20170203
  2. LEVECETIRIZIME [Concomitant]
  3. VITAMIN E [Concomitant]
     Active Substance: .ALPHA.-TOCOPHEROL
  4. VITAMIN D3 [Concomitant]
     Active Substance: CHOLECALCIFEROL
  5. AMITRIPTYLINE [Suspect]
     Active Substance: AMITRIPTYLINE
     Indication: MIGRAINE
     Dosage: ?          QUANTITY:1 TABLET(S);?
     Route: 048
     Dates: start: 20170117, end: 20170203
  6. VITAMIN B COMPLEX [Concomitant]
     Active Substance: CYANOCOBALAMIN\DEXPANTHENOL\NIACINAMIDE\PYRIDOXINE HYDROCHLORIDE\RIBOFLAVIN 5^-PHOSPHATE SODIUM\THIAMINE HYDROCHLORIDE\VITAMIN B COMPLEX
  7. CRANBERRY. [Concomitant]
     Active Substance: CRANBERRY
  8. SINGULAIR [Concomitant]
     Active Substance: MONTELUKAST SODIUM
  9. ALPHA LIPOID ACID [Concomitant]
  10. FIBER CAPSULES [Concomitant]
  11. TURMERIC [Concomitant]
     Active Substance: TURMERIC
  12. DYMISTA [Concomitant]
     Active Substance: AZELASTINE HYDROCHLORIDE\FLUTICASONE PROPIONATE
  13. MULTIVITAMIN [Concomitant]
     Active Substance: VITAMINS
  14. BERBERINE [Concomitant]
     Active Substance: BERBERINE

REACTIONS (4)
  - Thirst [None]
  - Drug dose omission [None]
  - Medication overuse headache [None]
  - Dry mouth [None]

NARRATIVE: CASE EVENT DATE: 20170205
